FAERS Safety Report 5579587-1 (Version None)
Quarter: 2007Q4

REPORT INFORMATION
  Report Type: 
  Country: None (occurrence: None)
  Receive Date: 20071130
  Receipt Date: 20070730
  Transmission Date: 20080405
  Serious: No
  Sender: FDA-Public Use
  Company Number: US200707000398

PATIENT
  Age: 67 Year
  Sex: Female

DRUGS (14)
  1. BYETTA [Suspect]
     Dosage: 10 UG, 2/D, SUBCUTANEOUS
     Route: 058
     Dates: start: 20070511, end: 20070611
  2. DURICEF [Concomitant]
  3. LASIX [Concomitant]
  4. GLIPIZIDE [Concomitant]
  5. COREG [Concomitant]
  6. GLUCOPHAGE [Concomitant]
  7. ALDACTONE [Concomitant]
  8. ALBUTEROL [Concomitant]
  9. COMBIVENT (IPRATROPIUM BROMIDE, SALBUTAMOL) [Concomitant]
  10. ZOCOR [Concomitant]
  11. B12 (CYANOCOBALAMIN-TANNIN COMPLEX) [Concomitant]
  12. SPIRIVA [Concomitant]
  13. PULMICORT [Concomitant]
  14. INSULIN (INSULIN) [Concomitant]

REACTIONS (1)
  - DERMATITIS [None]
